FAERS Safety Report 6494910-1 (Version None)
Quarter: 2009Q4

REPORT INFORMATION
  Report Type: 
  Country: None (occurrence: None)
  Receive Date: 20091214
  Receipt Date: 20090506
  Transmission Date: 20100525
  Serious: Yes (Other)
  Sender: FDA-Public Use
  Company Number: US-BRISTOL-MYERS SQUIBB COMPANY-14579635

PATIENT
  Age: 15 Year
  Sex: Female

DRUGS (1)
  1. ABILIFY [Suspect]
     Indication: MAJOR DEPRESSION
     Dosage: 1 DOSAGE FROM OF 2.5MG
     Dates: start: 20090113

REACTIONS (1)
  - CONVULSION [None]
